FAERS Safety Report 4366789-5 (Version None)
Quarter: 2004Q2

REPORT INFORMATION
  Report Type: 
  Country: None (occurrence: None)
  Receive Date: 20040524
  Receipt Date: 20040518
  Transmission Date: 20050107
  Serious: Yes (Hospitalization)
  Sender: FDA-Public Use
  Company Number: STA-AE-04-MTX-197

PATIENT
  Age: 42 Year
  Sex: Female

DRUGS (10)
  1. RHEUMATREX [Suspect]
     Indication: RHEUMATOID ARTHRITIS
     Dosage: 6 MG 1X PER 1 WK, ORAL
     Route: 048
     Dates: start: 20030628, end: 20031010
  2. METHOTREXATE [Suspect]
     Indication: RHEUMATOID ARTHRITIS
     Dosage: 5 MG 1X PER 1 DAY, ORAL
     Route: 048
     Dates: start: 19961205, end: 20030627
  3. REMICADE [Suspect]
     Indication: RHEUMATOID ARTHRITIS
     Dosage: 3 MG/KG/DAY, INTRAVENOUS
     Route: 042
     Dates: start: 20031004, end: 20031004
  4. SULINDAC [Concomitant]
  5. ISALON (ALDIOXA) [Concomitant]
  6. CIMETIDINE [Concomitant]
  7. VOLMAGEN (DICLOFENAC SODIUM) [Concomitant]
  8. PREDNISOLONE [Concomitant]
  9. ISONIAZID [Concomitant]
  10. LEVOTHYROXINE SODIUM [Concomitant]

REACTIONS (9)
  - ARTHRITIS INFECTIVE [None]
  - CELLULITIS [None]
  - DRUG ERUPTION [None]
  - DRUG INEFFECTIVE [None]
  - JOINT SWELLING [None]
  - PURPURA [None]
  - PYREXIA [None]
  - SEPSIS [None]
  - STAPHYLOCOCCAL INFECTION [None]
